FAERS Safety Report 4708814-5 (Version None)
Quarter: 2005Q3

REPORT INFORMATION
  Report Type: 
  Country: None (occurrence: None)
  Receive Date: 20050705
  Receipt Date: 20050615
  Transmission Date: 20060218
  Serious: Yes (Other)
  Sender: FDA-Public Use
  Company Number: 2005-06-0918

PATIENT
  Sex: Female

DRUGS (2)
  1. NASONEX [Suspect]
     Indication: HOUSE DUST ALLERGY
     Dosage: DAILY NASAL SPRAY; Q3-4 DAYS NASAL SPRAY
     Route: 045
  2. ALLERGY DESENSITIZATION MEDICATION [Concomitant]

REACTIONS (2)
  - AGEUSIA [None]
  - ANOSMIA [None]
